FAERS Safety Report 21267288 (Version 1)
Quarter: 2022Q3

REPORT INFORMATION
  Report Type: Spontaneous
  Country: CN (occurrence: None)
  Receive Date: 20220829
  Receipt Date: 20220829
  Transmission Date: 20221026
  Serious: Yes (Hospitalization)
  Sender: FDA-Public Use
  Company Number: CN-Merck Healthcare KGaA-9346078

PATIENT
  Age: 31 Year
  Sex: Female
  Weight: 62 kg

DRUGS (10)
  1. LUVERIS [Suspect]
     Active Substance: LUTROPIN ALFA
     Indication: Superovulation
     Route: 058
     Dates: start: 20220703, end: 20220704
  2. CETROTIDE [Suspect]
     Active Substance: CETRORELIX ACETATE
     Indication: Superovulation
     Route: 058
     Dates: start: 20220623, end: 20220623
  3. CETROTIDE [Suspect]
     Active Substance: CETRORELIX ACETATE
     Route: 058
     Dates: start: 20220627, end: 20220627
  4. FOLLITROPIN BETA [Suspect]
     Active Substance: FOLLITROPIN BETA
     Indication: Superovulation
     Route: 058
     Dates: start: 20220623, end: 20220629
  5. UROFOLLITROPIN [Suspect]
     Active Substance: UROFOLLITROPIN
     Indication: Superovulation
     Route: 030
     Dates: start: 20220630, end: 20220702
  6. UROFOLLITROPIN [Suspect]
     Active Substance: UROFOLLITROPIN
     Route: 030
     Dates: start: 20220703, end: 20220704
  7. MENOTROPINS [Suspect]
     Active Substance: MENOTROPINS
     Indication: Superovulation
     Route: 030
     Dates: start: 20220630, end: 20220702
  8. MENOTROPINS [Suspect]
     Active Substance: MENOTROPINS
     Route: 030
     Dates: start: 20220703, end: 20220704
  9. CHORIONIC GONADOTROPHIN [Suspect]
     Active Substance: CHORIOGONADOTROPIN ALFA
     Indication: Superovulation
     Route: 030
     Dates: start: 20220704, end: 20220704
  10. SODIUM CHLORIDE [Concomitant]
     Active Substance: SODIUM CHLORIDE
     Indication: Superovulation
     Route: 030
     Dates: start: 20220704, end: 20220704

REACTIONS (3)
  - Chest discomfort [Recovering/Resolving]
  - Abdominal distension [Recovering/Resolving]
  - Dysuria [Recovering/Resolving]

NARRATIVE: CASE EVENT DATE: 20220706
